FAERS Safety Report 9095455 (Version 1)
Quarter: 2013Q1

REPORT INFORMATION
  Report Type: Spontaneous
  Country: US (occurrence: US)
  Receive Date: 20130219
  Receipt Date: 20130219
  Transmission Date: 20140127
  Serious: Yes (Hospitalization)
  Sender: FDA-Public Use
  Company Number: PHHY2013US014036

PATIENT
  Age: 80 Year
  Sex: Male

DRUGS (4)
  1. ACETYLSALICYLIC ACID [Suspect]
     Indication: ATRIAL FIBRILLATION
     Dosage: 81 MG, UNK
  2. ACETYLSALICYLIC ACID [Suspect]
     Indication: INTRACARDIAC THROMBUS
  3. DABIGATRAN ETEXILATE [Suspect]
     Indication: ATRIAL FIBRILLATION
     Dosage: 150 MG, BID
  4. DABIGATRAN ETEXILATE [Suspect]
     Indication: INTRACARDIAC THROMBUS

REACTIONS (3)
  - Haemothorax [Unknown]
  - Haemorrhage [Unknown]
  - Haemoglobin decreased [Unknown]
